FAERS Safety Report 18571814 (Version 1)
Quarter: 2020Q4

REPORT INFORMATION
  Report Type: Spontaneous
  Country: AR (occurrence: AR)
  Receive Date: 20201202
  Receipt Date: 20201202
  Transmission Date: 20210114
  Serious: Yes (Other)
  Sender: FDA-Public Use
  Company Number: AR-MYLANLABS-2020M1097185

PATIENT
  Age: 60 Year
  Sex: Male

DRUGS (4)
  1. LAPENAX [Suspect]
     Active Substance: CLOZAPINE
     Dosage: 300 MILLIGRAM
     Dates: end: 202011
  2. LAPENAX [Suspect]
     Active Substance: CLOZAPINE
     Indication: SCHIZOPHRENIA
     Dosage: UNK
  3. LAPENAX [Suspect]
     Active Substance: CLOZAPINE
     Dosage: 400 MILLIGRAM
     Dates: start: 2019
  4. LEVODOPA [Concomitant]
     Active Substance: LEVODOPA
     Indication: PARKINSON^S DISEASE
     Dosage: UNK

REACTIONS (5)
  - Neutropenia [Not Recovered/Not Resolved]
  - Eosinophil count decreased [Unknown]
  - Basophil count increased [Unknown]
  - Leukopenia [Recovering/Resolving]
  - Lymphocyte count decreased [Unknown]

NARRATIVE: CASE EVENT DATE: 20201121
